FAERS Safety Report 8262777-7 (Version None)
Quarter: 2012Q2

REPORT INFORMATION
  Report Type: 
  Country: None (occurrence: None)
  Receive Date: 20120405
  Receipt Date: 20120329
  Transmission Date: 20120825
  Serious: Yes (Other)
  Sender: FDA-Public Use
  Company Number: DE-JNJFOC-20120304139

PATIENT
  Age: 45 Year
  Sex: Male
  Weight: 102 kg

DRUGS (6)
  1. STELARA [Suspect]
     Dates: end: 20111014
  2. STELARA [Suspect]
     Indication: PSORIASIS
  3. STELARA [Suspect]
     Dates: start: 20100118, end: 20110727
  4. STELARA [Suspect]
     Dates: end: 20111014
  5. STELARA [Suspect]
     Dates: start: 20100118, end: 20110727
  6. STELARA [Suspect]
     Indication: PRODUCT USED FOR UNKNOWN INDICATION

REACTIONS (2)
  - HEPATIC STEATOSIS [None]
  - ADRENAL ADENOMA [None]
